FAERS Safety Report 16941047 (Version 1)
Quarter: 2019Q4

REPORT INFORMATION
  Report Type: Spontaneous
  Country: US (occurrence: US)
  Receive Date: 20191019
  Receipt Date: 20191019
  Transmission Date: 20200122
  Serious: Yes (Life-Threatening, Hospitalization, Disabling)
  Sender: FDA-Public Use
  Company Number: None

PATIENT
  Age: 8 Year
  Sex: Male
  Weight: 59.4 kg

DRUGS (2)
  1. ZANTAC [Suspect]
     Active Substance: RANITIDINE HYDROCHLORIDE
     Indication: VOMITING
     Dosage: ?          OTHER FREQUENCY:WITH EACH BOTTLE;OTHER ROUTE:PUT INTO BREAST MILK FOR BOTTLE?
     Dates: start: 20030925, end: 20040825
  2. RANITIDINE. [Suspect]
     Active Substance: RANITIDINE

REACTIONS (2)
  - Pineal germinoma [None]
  - Gastrooesophageal reflux disease [None]

NARRATIVE: CASE EVENT DATE: 20120525
